FAERS Safety Report 7746866-9 (Version None)
Quarter: 2011Q3

REPORT INFORMATION
  Report Type: 
  Country: None (occurrence: None)
  Receive Date: 20110825
  Receipt Date: 20110429
  Transmission Date: 20111222
  Serious: No
  Sender: FDA-Public Use
  Company Number: 327650

PATIENT
  Age: 67 Year
  Sex: Female

DRUGS (1)
  1. VICTOZA [Suspect]
     Indication: TYPE 2 DIABETES MELLITUS
     Dosage: 1.2 MG, QD, SUBCUTANEOUS
     Route: 058
     Dates: start: 20110311

REACTIONS (9)
  - CHEST PAIN [None]
  - CONSTIPATION [None]
  - TINNITUS [None]
  - BLOOD GLUCOSE INCREASED [None]
  - DYSPNOEA [None]
  - WEIGHT DECREASED [None]
  - NAUSEA [None]
  - SINUS CONGESTION [None]
  - FLUID RETENTION [None]
